FAERS Safety Report 7768977-4 (Version None)
Quarter: 2011Q3

REPORT INFORMATION
  Report Type: 
  Country: None (occurrence: None)
  Receive Date: 20110922
  Receipt Date: 20110308
  Transmission Date: 20111222
  Serious: No
  Sender: FDA-Public Use
  Company Number: US-ASTRAZENECA-2011SE13022

PATIENT
  Age: 84 Year
  Sex: Female
  Weight: 59 kg

DRUGS (6)
  1. SEROQUEL [Suspect]
     Dosage: HALF 50 MILLIGRAM TABLET
     Route: 048
  2. LORAZEPAM [Concomitant]
  3. SEROQUEL [Suspect]
     Indication: AGITATION
     Route: 048
     Dates: start: 20090101
  4. SEROQUEL [Suspect]
     Route: 048
  5. SEROQUEL [Suspect]
     Dosage: ONE FOURTH 100 MILLIGRAM TABLET EVERY THREE HOURS
     Route: 048
  6. EFFEXOR [Concomitant]

REACTIONS (11)
  - WRONG TECHNIQUE IN DRUG USAGE PROCESS [None]
  - SCREAMING [None]
  - SLEEP DISORDER [None]
  - DRUG EFFECT DECREASED [None]
  - RESTLESSNESS [None]
  - DRUG INEFFECTIVE FOR UNAPPROVED INDICATION [None]
  - PSYCHOMOTOR HYPERACTIVITY [None]
  - AGITATION [None]
  - LOGORRHOEA [None]
  - PRURITUS [None]
  - AGGRESSION [None]
